FAERS Safety Report 10063806 (Version 1)
Quarter: 2014Q2

REPORT INFORMATION
  Report Type: Report from Study
  Country: US (occurrence: US)
  Receive Date: 20140408
  Receipt Date: 20140408
  Transmission Date: 20141212
  Serious: Yes (Hospitalization)
  Sender: FDA-Public Use
  Company Number: US-ROCHE-1375906

PATIENT
  Sex: Male
  Weight: 30.5 kg

DRUGS (1)
  1. SOMATROPIN [Suspect]
     Indication: RENAL FAILURE CHRONIC
     Route: 058

REACTIONS (4)
  - Thrombosis in device [Unknown]
  - Catheter site pain [Unknown]
  - Cough [Unknown]
  - Wheezing [Unknown]
